FAERS Safety Report 26093876 (Version 1)
Quarter: 2025Q4

REPORT INFORMATION
  Report Type: Spontaneous
  Country: AU (occurrence: AU)
  Receive Date: 20251126
  Receipt Date: 20251126
  Transmission Date: 20260117
  Serious: Yes (Other)
  Sender: AMGEN
  Company Number: AU-AMGEN-AUSSP2025230777

PATIENT
  Age: 36 Year
  Sex: Female

DRUGS (1)
  1. CINACALCET HYDROCHLORIDE [Suspect]
     Active Substance: CINACALCET HYDROCHLORIDE
     Indication: Hyperparathyroidism secondary
     Dosage: 90 MILLIGRAM, QD
     Route: 065

REACTIONS (3)
  - Calciphylaxis [Recovering/Resolving]
  - Hungry bone syndrome [Unknown]
  - Drug ineffective [Unknown]
